FAERS Safety Report 5904228-0 (Version None)
Quarter: 2008Q3

REPORT INFORMATION
  Report Type: 
  Country: None (occurrence: None)
  Receive Date: 20080930
  Receipt Date: 20080930
  Transmission Date: 20090109
  Serious: Yes (Hospitalization)
  Sender: FDA-Public Use
  Company Number: None

PATIENT
  Sex: Male
  Weight: 76.2043 kg

DRUGS (1)
  1. SUTENT [Suspect]
     Indication: DISEASE PROGRESSION
     Dosage: 25MG ONCE DAILY PO
     Route: 048
     Dates: start: 20080319, end: 20080902

REACTIONS (2)
  - DISEASE PROGRESSION [None]
  - PAIN [None]
